FAERS Safety Report 8022248-X (Version None)
Quarter: 2011Q4

REPORT INFORMATION
  Report Type: 
  Country: None (occurrence: None)
  Receive Date: 20111229
  Receipt Date: 20111220
  Transmission Date: 20120403
  Serious: Yes (Hospitalization, Other)
  Sender: FDA-Public Use
  Company Number: 2011MA017953

PATIENT
  Age: 40 Year
  Sex: Male

DRUGS (6)
  1. MIRTAZAPINE [Suspect]
     Dates: start: 20111009
  2. IBUPROFEN [Concomitant]
  3. MIRTAZAPINE [Suspect]
     Dates: start: 20111009
  4. PROPRANOLOL [Concomitant]
  5. CITALOPRAM [Concomitant]
  6. AMOXICILLIN [Concomitant]

REACTIONS (1)
  - HYPONATRAEMIA [None]
